FAERS Safety Report 8091255-3 (Version None)
Quarter: 2012Q1

REPORT INFORMATION
  Report Type: 
  Country: None (occurrence: None)
  Receive Date: 20120129
  Receipt Date: 20111025
  Transmission Date: 20120608
  Serious: No
  Sender: FDA-Public Use
  Company Number: US-ABBOTT-11P-163-0868224-00

PATIENT
  Age: 57 Year
  Sex: Female

DRUGS (7)
  1. EVISTA [Concomitant]
     Indication: NEOPLASM PROPHYLAXIS
  2. AZATHIOPRINE [Concomitant]
     Indication: CROHN'S DISEASE
  3. HUMIRA [Suspect]
     Indication: CROHN'S DISEASE
     Dates: start: 20090101
  4. PREDNISOLONE [Concomitant]
     Indication: PRODUCT USED FOR UNKNOWN INDICATION
  5. METOPROLOL TARTRATE [Concomitant]
     Indication: HYPERTENSION
  6. HUMIRA [Suspect]
     Dates: start: 20110813
  7. EVISTA [Concomitant]
     Indication: OSTEOPOROSIS PROPHYLAXIS

REACTIONS (3)
  - PAIN [None]
  - ARTHRITIS [None]
  - MOBILITY DECREASED [None]
